FAERS Safety Report 23615901 (Version 2)
Quarter: 2024Q1

REPORT INFORMATION
  Report Type: Spontaneous
  Country: PT (occurrence: PT)
  Receive Date: 20240311
  Receipt Date: 20240312
  Transmission Date: 20240410
  Serious: Yes (Life-Threatening, Hospitalization, Other)
  Sender: FDA-Public Use
  Company Number: PT-BIAL-BIAL-16268

PATIENT
  Age: 68 Year
  Sex: Female

DRUGS (1)
  1. ALLOPURINOL [Suspect]
     Active Substance: ALLOPURINOL
     Indication: Hyperuricaemia
     Dosage: 100 MILLIGRAM
     Route: 065

REACTIONS (7)
  - Septic shock [Recovered/Resolved]
  - Urosepsis [Recovered/Resolved]
  - Klebsiella infection [Recovered/Resolved]
  - Multiple organ dysfunction syndrome [Recovered/Resolved]
  - Acute kidney injury [Recovered/Resolved]
  - Toxic epidermal necrolysis [Recovering/Resolving]
  - Thrombocytopenia [Recovered/Resolved]
